FAERS Safety Report 4936445-0 (Version None)
Quarter: 2006Q1

REPORT INFORMATION
  Report Type: 
  Country: None (occurrence: None)
  Receive Date: 20060302
  Receipt Date: 20060217
  Transmission Date: 20060701
  Serious: Yes (Death, Other)
  Sender: FDA-Public Use
  Company Number: 2005129227

PATIENT
  Sex: Male

DRUGS (3)
  1. NEURONTIN [Suspect]
     Indication: ATTENTION DEFICIT/HYPERACTIVITY DISORDER
     Dates: start: 20020730, end: 20030101
  2. NEURONTIN [Suspect]
     Indication: BIPOLAR DISORDER
     Dates: start: 20020730, end: 20030101
  3. NEURONTIN [Suspect]
     Indication: MIGRAINE
     Dates: start: 20020730, end: 20030101

REACTIONS (4)
  - COMPLETED SUICIDE [None]
  - DRUG INEFFECTIVE [None]
  - INJURY ASPHYXIATION [None]
  - RESPIRATORY ARREST [None]
